FAERS Safety Report 19854996 (Version 1)
Quarter: 2021Q3

REPORT INFORMATION
  Report Type: Spontaneous
  Country: US (occurrence: US)
  Receive Date: 20210920
  Receipt Date: 20210920
  Transmission Date: 20211014
  Serious: Yes (Other)
  Sender: FDA-Public Use
  Company Number: US-SA-2021SA305650

PATIENT
  Age: 13 Year
  Sex: Male
  Weight: 77.11 kg

DRUGS (16)
  1. LMX4 [Concomitant]
     Active Substance: LIDOCAINE
  2. FABRAZYME [Suspect]
     Active Substance: AGALSIDASE BETA
     Indication: LIPIDOSIS
  3. AMOXICILLIN/CLAVULANATE POTASSIUM [Concomitant]
     Active Substance: AMOXICILLIN\CLAVULANATE POTASSIUM
  4. CORTISPORIN?TC [Concomitant]
     Active Substance: COLISTIN SULFATE\HYDROCORTISONE ACETATE\NEOMYCIN SULFATE\THONZONIUM BROMIDE
  5. STERILE WATER [Concomitant]
     Active Substance: WATER
  6. SOLU?MEDROL [Concomitant]
     Active Substance: METHYLPREDNISOLONE SODIUM SUCCINATE
  7. CLARITIN [Concomitant]
     Active Substance: LORATADINE
     Indication: PREMEDICATION
     Dosage: 24?HOUR MEDICATION AT 17:00
  8. MULTIVITAMINS [VITAMINS NOS] [Concomitant]
     Active Substance: VITAMINS
  9. FABRAZYME [Suspect]
     Active Substance: AGALSIDASE BETA
     Indication: FABRY^S DISEASE
     Dosage: 75 MG, QOW
     Route: 041
     Dates: start: 20150423
  10. IBUPROFEN. [Concomitant]
     Active Substance: IBUPROFEN
  11. EPINEPHRINE. [Concomitant]
     Active Substance: EPINEPHRINE
  12. VITAMIN D3 [Concomitant]
     Active Substance: CHOLECALCIFEROL
  13. NORMAL SALINE [Concomitant]
     Active Substance: SODIUM CHLORIDE
  14. ACETAMINOPHEN. [Concomitant]
     Active Substance: ACETAMINOPHEN
     Indication: PREMEDICATION
  15. MEDROL [Concomitant]
     Active Substance: METHYLPREDNISOLONE
  16. DIPHENHYDRAMINE. [Concomitant]
     Active Substance: DIPHENHYDRAMINE

REACTIONS (4)
  - Urticaria [Recovering/Resolving]
  - Neuropathy peripheral [Unknown]
  - Arthropod sting [Unknown]
  - Fatigue [Unknown]

NARRATIVE: CASE EVENT DATE: 20210909
